FAERS Safety Report 24971763 (Version 1)
Quarter: 2025Q1

REPORT INFORMATION
  Report Type: Spontaneous
  Country: BR (occurrence: BR)
  Receive Date: 20250214
  Receipt Date: 20250214
  Transmission Date: 20250409
  Serious: Yes (Other)
  Sender: PFIZER
  Company Number: BR-PFIZER INC-202500031068

PATIENT
  Age: 89 Year
  Sex: Male

DRUGS (2)
  1. PRECEDEX [Suspect]
     Active Substance: DEXMEDETOMIDINE HYDROCHLORIDE
     Route: 041
     Dates: start: 20241121, end: 20241121
  2. PRECEDEX [Suspect]
     Active Substance: DEXMEDETOMIDINE HYDROCHLORIDE
     Route: 041
     Dates: start: 20241120, end: 20241120

REACTIONS (15)
  - Haematochezia [Unknown]
  - Dementia [Unknown]
  - Hypotension [Unknown]
  - Melaena [Unknown]
  - Bradycardia [Unknown]
  - Communication disorder [Unknown]
  - Blood pressure fluctuation [Unknown]
  - Somnolence [Unknown]
  - Phlebitis [Unknown]
  - Bronchial injury [Unknown]
  - Lethargy [Unknown]
  - Pallor [Unknown]
  - Agitation [Unknown]
  - Cyanosis [Unknown]
  - Medication error [Unknown]

NARRATIVE: CASE EVENT DATE: 20241120
